FAERS Safety Report 4679735-1 (Version None)
Quarter: 2005Q2

REPORT INFORMATION
  Report Type: 
  Country: None (occurrence: None)
  Receive Date: 20050602
  Receipt Date: 20050523
  Transmission Date: 20051028
  Serious: Yes (Death)
  Sender: FDA-Public Use
  Company Number: BE-ROCHE-405778

PATIENT
  Age: 81 Year
  Sex: Female
  Weight: 70 kg

DRUGS (3)
  1. BONDRONAT [Suspect]
     Indication: MULTIPLE MYELOMA
     Dosage: SECONDARY INDICATION OF RENAL INSUFFICIENCY
     Route: 048
     Dates: start: 20050421, end: 20050505
  2. ALKERAN [Concomitant]
     Route: 048
     Dates: start: 20030715, end: 20040715
  3. PREDNISONE TAB [Concomitant]
     Dosage: TRADE NAME WAS REPORTED AS PDN
     Route: 048
     Dates: start: 20040715, end: 20040715

REACTIONS (3)
  - LUNG DISORDER [None]
  - MULTIPLE MYELOMA [None]
  - PULMONARY EMBOLISM [None]
